FAERS Safety Report 12531668 (Version 2)
Quarter: 2016Q3

REPORT INFORMATION
  Report Type: Spontaneous
  Country: BR (occurrence: BR)
  Receive Date: 20160706
  Receipt Date: 20160713
  Transmission Date: 20161109
  Serious: Yes (Hospitalization)
  Sender: FDA-Public Use
  Company Number: BR-BIOMARINAP-BR-2016-110275

PATIENT
  Age: 11 Year
  Sex: Female
  Weight: 15 kg

DRUGS (1)
  1. NAGLAZYME [Suspect]
     Active Substance: GALSULFASE
     Indication: MUCOPOLYSACCHARIDOSIS VI
     Dosage: 20 MG, QW
     Route: 042
     Dates: start: 20080918

REACTIONS (5)
  - Urinary tract infection [Unknown]
  - Secretion discharge [Unknown]
  - Pyrexia [Unknown]
  - Cough [Unknown]
  - Sepsis [Unknown]

NARRATIVE: CASE EVENT DATE: 20160618
